FAERS Safety Report 8968611 (Version 1)
Quarter: 2012Q4

REPORT INFORMATION
  Report Type: Report from Study
  Country: FR (occurrence: FR)
  Receive Date: 20121217
  Receipt Date: 20121217
  Transmission Date: 20130627
  Serious: Yes (Other)
  Sender: FDA-Public Use
  Company Number: FR-ROCHE-1169439

PATIENT
  Age: 68 Year
  Sex: Female

DRUGS (17)
  1. RITUXIMAB [Suspect]
     Indication: CHRONIC LYMPHOCYTIC LEUKAEMIA
     Dosage: last dose taken on 06/Mar/2012
     Route: 041
     Dates: start: 20120221
  2. RITUXIMAB [Suspect]
     Dosage: last dose taken on 06/Mar/2012
     Route: 041
     Dates: start: 20120306
  3. RITUXIMAB [Suspect]
     Route: 042
     Dates: start: 20120221, end: 20120221
  4. RITUXIMAB [Suspect]
     Route: 042
     Dates: start: 20120222, end: 20120222
  5. CYCLOPHOSPHAMIDE [Suspect]
     Indication: CHRONIC LYMPHOCYTIC LEUKAEMIA
     Dosage: last dose taken on 24/Feb/2012
     Route: 002
     Dates: start: 20120222
  6. FLUDARABINE PHOSPHATE [Suspect]
     Indication: CHRONIC LYMPHOCYTIC LEUKAEMIA
     Dosage: last dose taken on 24/Feb/2012
     Route: 002
     Dates: start: 20120222
  7. LEDERFOLINE [Concomitant]
  8. AMOXICILLIN/CLAVULANIC ACID [Concomitant]
     Route: 065
     Dates: start: 20120316, end: 20120321
  9. ALLOPURINOL [Concomitant]
  10. COTRIMOXAZOLE [Concomitant]
  11. VALACICLOVIR [Concomitant]
  12. ALIZAPRIDE [Concomitant]
  13. DARBEPOETIN ALFA [Concomitant]
  14. LENOGRASTIM [Concomitant]
  15. ONDANSETRON [Concomitant]
  16. DEXCHLORPHENIRAMINE [Concomitant]
  17. METHYLPREDNISOLONE [Concomitant]

REACTIONS (2)
  - Von Willebrand^s disease [Recovered/Resolved]
  - Rectal haemorrhage [Recovered/Resolved]
